FAERS Safety Report 4304811-2 (Version None)
Quarter: 2004Q1

REPORT INFORMATION
  Report Type: 
  Country: None (occurrence: None)
  Receive Date: 20040225
  Receipt Date: 20040225
  Transmission Date: 20041129
  Serious: Yes (Hospitalization)
  Sender: FDA-Public Use
  Company Number: None

PATIENT
  Age: 79 Year
  Sex: Female
  Weight: 72 kg

DRUGS (5)
  1. ENOXAPARIN  SC [Suspect]
     Indication: ATRIAL FIBRILLATION
     Dosage: 70 MG SC BID
     Route: 058
     Dates: start: 20030331, end: 20030403
  2. HEPARIN [Suspect]
     Dosage: 25000U/250CC D5W @ /ACE/
     Dates: start: 20030328, end: 20030403
  3. CAPTOPRIL [Concomitant]
  4. DIGOXIN [Concomitant]
  5. DILTIAZEM [Concomitant]

REACTIONS (3)
  - COAGULOPATHY [None]
  - MELAENA [None]
  - RETROPERITONEAL HAEMORRHAGE [None]
